FAERS Safety Report 17572848 (Version 1)
Quarter: 2020Q1

REPORT INFORMATION
  Report Type: Spontaneous
  Country: IT (occurrence: IT)
  Receive Date: 20200323
  Receipt Date: 20200323
  Transmission Date: 20200409
  Serious: Yes (Other)
  Sender: FDA-Public Use
  Company Number: IT-SHIRE-IT202010713

PATIENT

DRUGS (5)
  1. MESAVANCOL [Suspect]
     Active Substance: MESALAMINE
     Indication: COLITIS
     Dosage: 4 DOSAGE FORM, 4X/DAY:QID
     Route: 048
     Dates: start: 20030101
  2. ENSURE [Concomitant]
     Active Substance: AMINO ACIDS\DEXTROSE\ELECTROLYTES NOS\SOYBEAN OIL\VITAMINS
     Indication: NUTRITIONAL SUPPLEMENTATION
     Dosage: UNK, 1X/DAY:QD
  3. ASALEX [Suspect]
     Active Substance: MESALAMINE
     Indication: COLITIS
     Dosage: 1.5 GRAM, 1X/DAY:QD
     Route: 065
     Dates: start: 20030101
  4. SIDERAL FORTE [Concomitant]
     Active Substance: ASCORBIC ACID\FERRIC PYROPHOSPHATE
     Indication: NUTRITIONAL SUPPLEMENTATION
     Dosage: UNK, QOD
  5. DELTACORTENE [Suspect]
     Active Substance: PREDNISONE
     Indication: COLITIS ULCERATIVE
     Dosage: UNK, UNKNOWN
     Route: 048
     Dates: start: 20100101, end: 20191110

REACTIONS (3)
  - Drug resistance [Unknown]
  - Colitis ulcerative [Unknown]
  - Drug ineffective [Unknown]

NARRATIVE: CASE EVENT DATE: 20190901
